FAERS Safety Report 18042965 (Version 1)
Quarter: 2020Q3

REPORT INFORMATION
  Report Type: Spontaneous
  Country: FR (occurrence: FR)
  Receive Date: 20200720
  Receipt Date: 20200720
  Transmission Date: 20201103
  Serious: Yes (Hospitalization, Other)
  Sender: FDA-Public Use
  Company Number: FR-CADILA HEALTHCARE LIMITED-FR-ZYDUS-052184

PATIENT

DRUGS (15)
  1. VALPROMIDE [Interacting]
     Active Substance: VALPROMIDE
     Indication: CHRONIC LYMPHOCYTIC LEUKAEMIA
     Route: 065
  2. VENETOCLAX. [Suspect]
     Active Substance: VENETOCLAX
     Indication: PRODUCT USED FOR UNKNOWN INDICATION
     Dosage: 50 MILLIGRAM, QD
     Route: 048
  3. METHOTREXATE. [Suspect]
     Active Substance: METHOTREXATE
     Dosage: 2 GRAM PER SQUARE METRE
     Route: 042
  4. RITUXIMAB. [Suspect]
     Active Substance: RITUXIMAB
     Indication: PRODUCT USED FOR UNKNOWN INDICATION
     Dosage: 375 MG/M2 (WEEK 21)
     Route: 065
  5. VENETOCLAX. [Suspect]
     Active Substance: VENETOCLAX
     Dosage: 200 MILLIGRAM, QD
     Route: 048
  6. RITUXIMAB. [Suspect]
     Active Substance: RITUXIMAB
     Dosage: 375 MG/M2 (WEEK 13)
     Route: 065
  7. LACOSAMIDE. [Interacting]
     Active Substance: LACOSAMIDE
     Indication: CHRONIC LYMPHOCYTIC LEUKAEMIA
     Route: 065
  8. METHOTREXATE. [Suspect]
     Active Substance: METHOTREXATE
     Indication: CHRONIC LYMPHOCYTIC LEUKAEMIA
     Dosage: 2 GRAM PER SQUARE METRE (HIGH DOSE)
     Route: 042
  9. VENETOCLAX. [Suspect]
     Active Substance: VENETOCLAX
     Dosage: 100 MILLIGRAM, QD
     Route: 048
  10. METHOTREXATE. [Suspect]
     Active Substance: METHOTREXATE
     Dosage: 2000 MILLIGRAM/SQ. METER (CYCLIC)
     Route: 042
  11. PREDNISONE. [Suspect]
     Active Substance: PREDNISONE
     Indication: CHRONIC LYMPHOCYTIC LEUKAEMIA RECURRENT
     Dosage: 0.5 MILLIGRAM/KILOGRAM
     Route: 048
  12. VENETOCLAX. [Suspect]
     Active Substance: VENETOCLAX
     Dosage: 20 MILLIGRAM, QD
     Route: 048
  13. IBRUTINIB [Suspect]
     Active Substance: IBRUTINIB
     Indication: CHRONIC LYMPHOCYTIC LEUKAEMIA
     Dosage: 420 MG, DAILY
     Route: 065
     Dates: start: 201606
  14. LEVETIRACETAM. [Suspect]
     Active Substance: LEVETIRACETAM
     Indication: CHRONIC LYMPHOCYTIC LEUKAEMIA
     Dosage: UNK
     Route: 065
  15. RITUXIMAB. [Suspect]
     Active Substance: RITUXIMAB
     Dosage: 375 MG/M2 (WEEK 17)
     Route: 065

REACTIONS (6)
  - Therapeutic product effect incomplete [Unknown]
  - Neurological symptom [Recovered/Resolved with Sequelae]
  - Chronic lymphocytic leukaemia [Recovered/Resolved]
  - Neutropenia [Unknown]
  - Chronic lymphocytic leukaemia recurrent [Unknown]
  - Drug interaction [Unknown]
